FAERS Safety Report 19646621 (Version 1)
Quarter: 2021Q3

REPORT INFORMATION
  Report Type: Spontaneous
  Country: US (occurrence: US)
  Receive Date: 20210802
  Receipt Date: 20210802
  Transmission Date: 20211014
  Serious: No
  Sender: FDA-Public Use
  Company Number: US-GW PHARMA-202107USGW03696

PATIENT

DRUGS (2)
  1. EPIDIOLEX [Suspect]
     Active Substance: CANNABIDIOL
     Indication: LENNOX-GASTAUT SYNDROME
     Dosage: 1200 MILLIGRAM, FREQUENCY NOT REPORTED
     Route: 048
     Dates: start: 202105
  2. ONFI [Concomitant]
     Active Substance: CLOBAZAM
     Indication: PRODUCT USED FOR UNKNOWN INDICATION
     Dosage: UNK (BEING WEANED OFF)
     Route: 065
     Dates: end: 2021

REACTIONS (1)
  - Agitation [Unknown]

NARRATIVE: CASE EVENT DATE: 2021
